FAERS Safety Report 14026932 (Version 1)
Quarter: 2017Q3

REPORT INFORMATION
  Report Type: Spontaneous
  Country: US (occurrence: US)
  Receive Date: 20170929
  Receipt Date: 20170929
  Transmission Date: 20171128
  Serious: No
  Sender: FDA-Public Use
  Company Number: US-SUNOVION-2017SUN004109

PATIENT

DRUGS (1)
  1. LATUDA [Suspect]
     Active Substance: LURASIDONE HYDROCHLORIDE
     Indication: BIPOLAR DISORDER
     Route: 048

REACTIONS (7)
  - Chest pain [Unknown]
  - Feeling abnormal [Unknown]
  - Mania [Unknown]
  - Headache [Unknown]
  - Depression [Unknown]
  - Psychiatric symptom [Unknown]
  - Drug withdrawal syndrome [Unknown]
